FAERS Safety Report 7960463-1 (Version None)
Quarter: 2011Q4

REPORT INFORMATION
  Report Type: 
  Country: None (occurrence: None)
  Receive Date: 20111206
  Receipt Date: 20111202
  Transmission Date: 20120403
  Serious: Yes (Death, Hospitalization)
  Sender: FDA-Public Use
  Company Number: US-ABBOTT-11P-163-0834875-00

PATIENT
  Sex: Male
  Weight: 63.56 kg

DRUGS (6)
  1. FLOMAX [Concomitant]
     Indication: DYSURIA
  2. HUMIRA [Suspect]
     Indication: PSORIATIC ARTHROPATHY
     Dates: start: 20061221, end: 20110601
  3. HUMIRA [Suspect]
     Indication: PSORIASIS
  4. UNKNOWN INHALER [Concomitant]
     Indication: CHRONIC OBSTRUCTIVE PULMONARY DISEASE
  5. LIPITOR [Concomitant]
     Indication: BLOOD CHOLESTEROL INCREASED
  6. LISINOPRIL [Concomitant]
     Indication: HYPERTENSION

REACTIONS (10)
  - DYSPNOEA [None]
  - HYPOTENSION [None]
  - ANAEMIA [None]
  - OXYGEN SATURATION DECREASED [None]
  - HEPATIC FUNCTION ABNORMAL [None]
  - CARDIAC FAILURE [None]
  - ASTHENIA [None]
  - DYSURIA [None]
  - RENAL IMPAIRMENT [None]
  - BENIGN LUNG NEOPLASM [None]
